FAERS Safety Report 5354047-1 (Version None)
Quarter: 2007Q2

REPORT INFORMATION
  Report Type: 
  Country: None (occurrence: None)
  Receive Date: 20070612
  Receipt Date: 20070606
  Transmission Date: 20071010
  Serious: Yes (Other)
  Sender: FDA-Public Use
  Company Number: A0653789A

PATIENT
  Age: 70 Year
  Sex: Male

DRUGS (4)
  1. COREG [Suspect]
     Dosage: 3.125MG SEE DOSAGE TEXT
     Route: 048
     Dates: end: 20070530
  2. COREG CR [Suspect]
     Dosage: 10MG PER DAY
     Route: 048
     Dates: start: 20070530
  3. LISINOPRIL [Concomitant]
  4. DIGITALIS TAB [Concomitant]

REACTIONS (7)
  - BLOOD PRESSURE DECREASED [None]
  - DIARRHOEA [None]
  - INFLAMMATION [None]
  - LOSS OF CONSCIOUSNESS [None]
  - LYMPH NODE PAIN [None]
  - MYALGIA [None]
  - URINARY TRACT DISORDER [None]
